FAERS Safety Report 8244986-6 (Version None)
Quarter: 2012Q1

REPORT INFORMATION
  Report Type: 
  Country: None (occurrence: None)
  Receive Date: 20120329
  Receipt Date: 20120321
  Transmission Date: 20120608
  Serious: Yes (Hospitalization)
  Sender: FDA-Public Use
  Company Number: US-ABBOTT-12P-163-0912965-00

PATIENT
  Sex: Female
  Weight: 79.45 kg

DRUGS (10)
  1. LOMOTIL [Concomitant]
     Indication: PRODUCT USED FOR UNKNOWN INDICATION
  2. PREDNISONE TAB [Concomitant]
     Dates: start: 20120101
  3. VITAMIN D [Concomitant]
     Indication: VITAMIN SUPPLEMENTATION
  4. MULTIPLE VITAMINS [Concomitant]
     Indication: VITAMIN SUPPLEMENTATION
  5. PREDNISONE TAB [Concomitant]
     Indication: CROHN'S DISEASE
  6. CALCIUM CARBONATE [Concomitant]
     Indication: MINERAL SUPPLEMENTATION
  7. QUESTRAN [Concomitant]
     Indication: PRODUCT USED FOR UNKNOWN INDICATION
  8. HUMIRA [Suspect]
     Indication: CROHN'S DISEASE
     Dosage: 160MG ONE DOSE
     Route: 058
     Dates: start: 20120301, end: 20120301
  9. NEXIUM [Concomitant]
     Indication: GASTROOESOPHAGEAL REFLUX DISEASE
  10. VITAMIN B-12 [Concomitant]
     Indication: VITAMIN SUPPLEMENTATION

REACTIONS (15)
  - PNEUMONIA [None]
  - BLOOD PRESSURE INCREASED [None]
  - OROPHARYNGEAL PAIN [None]
  - ASTHENIA [None]
  - ROSACEA [None]
  - EYE PAIN [None]
  - WHITE BLOOD CELL COUNT INCREASED [None]
  - DRUG INEFFECTIVE [None]
  - DIARRHOEA [None]
  - NIGHT SWEATS [None]
  - COUGH [None]
  - NASOPHARYNGITIS [None]
  - DYSPNOEA [None]
  - SINUSITIS [None]
  - INTESTINAL OBSTRUCTION [None]
